FAERS Safety Report 4918487-4 (Version None)
Quarter: 2006Q1

REPORT INFORMATION
  Report Type: 
  Country: None (occurrence: None)
  Receive Date: 20060214
  Receipt Date: 20060126
  Transmission Date: 20060701
  Serious: Yes (Hospitalization, Other)
  Sender: FDA-Public Use
  Company Number: FR200601004644

PATIENT
  Age: 60 Year
  Sex: Female

DRUGS (1)
  1. PROZAC [Suspect]
     Indication: DEPRESSION
     Dosage: ORAL
     Route: 048
     Dates: start: 20041001, end: 20051001

REACTIONS (3)
  - ACUTE PULMONARY OEDEMA [None]
  - CONDITION AGGRAVATED [None]
  - DIABETIC RETINOPATHY [None]
